FAERS Safety Report 14488203 (Version 6)
Quarter: 2018Q3

REPORT INFORMATION
  Report Type: Spontaneous
  Country: DE (occurrence: DE)
  Receive Date: 20180205
  Receipt Date: 20180817
  Transmission Date: 20181010
  Serious: Yes (Hospitalization)
  Sender: FDA-Public Use
  Company Number: DE-ASCEND THERAPEUTICS-2041408

PATIENT
  Age: 77 Year
  Sex: Female
  Weight: 75 kg

DRUGS (4)
  1. GYNODIAN DEPOT (ESTRADIOL VALERATE ? PRASTERONE ENANTATE) [Suspect]
     Active Substance: ESTRADIOL VALERATE\PRASTERONE ENANTATE
     Route: 030
     Dates: start: 20170830, end: 20170830
  2. GYNODIAN DEPOT (ESTRADIOL VALERATE ? PRASTERONE ENANTATE) [Suspect]
     Active Substance: ESTRADIOL VALERATE\PRASTERONE ENANTATE
     Route: 030
     Dates: start: 20180126, end: 20180126
  3. ESTROGEL [Suspect]
     Active Substance: ESTRADIOL
     Indication: PRODUCT USED FOR UNKNOWN INDICATION
     Route: 062
     Dates: start: 201708, end: 20180122
  4. IBUPROFEN. [Concomitant]
     Active Substance: IBUPROFEN
     Route: 048

REACTIONS (1)
  - Transient ischaemic attack [Recovered/Resolved]

NARRATIVE: CASE EVENT DATE: 20171019
